APPROVED DRUG PRODUCT: FLAGYL I.V. RTU IN PLASTIC CONTAINER
Active Ingredient: METRONIDAZOLE
Strength: 500MG/100ML
Dosage Form/Route: INJECTABLE;INJECTION
Application: N018657 | Product #001 | TE Code: AP
Applicant: BAXTER HEALTHCARE CORP
Approved: Approved Prior to Jan 1, 1982 | RLD: Yes | RS: Yes | Type: RX